FAERS Safety Report 6695008-X (Version None)
Quarter: 2010Q2

REPORT INFORMATION
  Report Type: 
  Country: None (occurrence: None)
  Receive Date: 20100423
  Receipt Date: 20100412
  Transmission Date: 20101027
  Serious: Yes (Other)
  Sender: FDA-Public Use
  Company Number: PHHY2010BR23625

PATIENT
  Age: 64 Year
  Sex: Female
  Weight: 53 kg

DRUGS (1)
  1. ELIDEL [Suspect]
     Indication: RASH
     Dosage: 30 GRAM, 1 APPLICATION AT NIGHT
     Route: 061

REACTIONS (4)
  - ERYTHEMA [None]
  - INFLAMMATION [None]
  - PRURITUS [None]
  - RASH [None]
